FAERS Safety Report 9770016 (Version 1)
Quarter: 2013Q4

REPORT INFORMATION
  Report Type: Spontaneous
  Country: US (occurrence: US)
  Receive Date: 20131218
  Receipt Date: 20131218
  Transmission Date: 20140711
  Serious: No
  Sender: FDA-Public Use
  Company Number: US-009507513-1312USA004304

PATIENT
  Age: 71 Year
  Sex: Female

DRUGS (5)
  1. JANUVIA [Suspect]
     Indication: TYPE 2 DIABETES MELLITUS
     Dosage: 100 MG/ONCE DAILY
     Route: 048
     Dates: start: 201309, end: 2013
  2. ZOCOR [Concomitant]
  3. LISINOPRIL [Concomitant]
  4. ALPRAZOLAM [Concomitant]
  5. METFORMIN [Concomitant]

REACTIONS (5)
  - Blood glucose fluctuation [Not Recovered/Not Resolved]
  - Heart rate increased [Recovered/Resolved]
  - Asthenia [Recovered/Resolved]
  - Dizziness [Recovered/Resolved]
  - Blood glucose decreased [Not Recovered/Not Resolved]
